FAERS Safety Report 24326266 (Version 1)
Quarter: 2024Q3

REPORT INFORMATION
  Report Type: Spontaneous
  Country: FR (occurrence: FR)
  Receive Date: 20240917
  Receipt Date: 20240917
  Transmission Date: 20241017
  Serious: Yes (Hospitalization, Other)
  Sender: CELLTRION
  Company Number: None

PATIENT

DRUGS (22)
  1. RITUXIMAB [Suspect]
     Active Substance: RITUXIMAB
     Indication: Diffuse large B-cell lymphoma
     Dosage: 600 MG, 1 TOTAL
     Dates: start: 20230317, end: 20230317
  2. NALOXONE HYDROCHLORIDE\OXYCODONE HYDROCHLORIDE [Suspect]
     Active Substance: NALOXONE HYDROCHLORIDE\OXYCODONE HYDROCHLORIDE
     Indication: Pain
     Dosage: 2 DF, EVERY 1 DAY
     Route: 048
     Dates: start: 20230316, end: 20230320
  3. METHYLPREDNISOLONE [Suspect]
     Active Substance: METHYLPREDNISOLONE
     Indication: Product used for unknown indication
     Dosage: 100 MG, EVERY 1 DAY
     Route: 042
     Dates: start: 20230317, end: 20230321
  4. ESCITALOPRAM [Suspect]
     Active Substance: ESCITALOPRAM OXALATE
     Indication: Product used for unknown indication
     Dosage: 10 MG, EVERY 1 DAY
     Route: 048
     Dates: start: 202301, end: 20230322
  5. CYCLOPHOSPHAMIDE [Suspect]
     Active Substance: CYCLOPHOSPHAMIDE
     Indication: Diffuse large B-cell lymphoma
     Dosage: 1200 MG, 1 TOTAL
     Route: 042
     Dates: start: 20230320, end: 20230320
  6. NALOXEGOL OXALATE [Suspect]
     Active Substance: NALOXEGOL OXALATE
     Indication: Product used for unknown indication
     Dosage: 1 DF, EVERY 1 DAY
     Route: 048
     Dates: start: 20230316, end: 20230322
  7. VINCRISTINE SULFATE [Suspect]
     Active Substance: VINCRISTINE SULFATE
     Indication: Diffuse large B-cell lymphoma
     Dosage: 0.64 MG, EVERY 1 DAY
     Route: 042
     Dates: start: 20230317, end: 20230320
  8. METHOTREXATE [Suspect]
     Active Substance: METHOTREXATE
     Indication: Diffuse large B-cell lymphoma
     Dosage: 15 MG, 1 TOTAL
     Dates: start: 20230317, end: 20230317
  9. APREPITANT [Suspect]
     Active Substance: APREPITANT
     Indication: Product used for unknown indication
     Dosage: 125 MG, 1 TOTAL
     Route: 048
     Dates: start: 20230317, end: 20230317
  10. APREPITANT [Suspect]
     Active Substance: APREPITANT
     Dosage: 80 MG, EVERY 1 DAY
     Route: 048
     Dates: start: 20230318, end: 20230322
  11. DOXORUBICIN [Suspect]
     Active Substance: DOXORUBICIN
     Indication: Diffuse large B-cell lymphoma
     Dosage: 16 MG, EVERY 1 DAY, NACL 0.9%
     Route: 042
     Dates: start: 20230317, end: 20230320
  12. ETOPOSIDE [Suspect]
     Active Substance: ETOPOSIDE
     Indication: Diffuse large B-cell lymphoma
     Dosage: 80 MG, EVERY 1 DAY, NACL 0.9%
     Route: 042
     Dates: start: 20230317, end: 20230320
  13. DEXTROSE\POTASSIUM CHLORIDE\SODIUM CHLORIDE [Suspect]
     Active Substance: DEXTROSE\POTASSIUM CHLORIDE\SODIUM CHLORIDE
     Indication: Product used for unknown indication
     Dosage: 3 LITER, EVERY 1 DAY
     Route: 042
     Dates: start: 20230316, end: 20230322
  14. POTASSIUM CHLORIDE [Suspect]
     Active Substance: POTASSIUM CHLORIDE
     Indication: Product used for unknown indication
     Dosage: 1 DF, EVERY 1 DAY
     Route: 048
     Dates: start: 20230317, end: 20230318
  15. FASTURTEC [Suspect]
     Active Substance: RASBURICASE
     Indication: Product used for unknown indication
     Dosage: 1 DF, 1 TOTAL
     Dates: start: 20230317, end: 20230317
  16. INDAPAMIDE [Concomitant]
     Active Substance: INDAPAMIDE
     Dosage: 1.5 MG, EVERY 1 DAY
     Route: 048
     Dates: start: 20230322
  17. ESOMEPRAZOLE [Concomitant]
     Active Substance: ESOMEPRAZOLE
     Dosage: 20 MG, EVERY 1 DAY
  18. OXYCODONE [Concomitant]
     Active Substance: OXYCODONE
     Dosage: 40 MG, EVERY 1 DAY
  19. FUROSEMIDE [Concomitant]
     Active Substance: FUROSEMIDE
     Dosage: 20 MG, AS NECESSARY
     Route: 042
     Dates: start: 20230319, end: 20230319
  20. PERINDOPRIL [Concomitant]
     Active Substance: PERINDOPRIL
     Dosage: 10 MG, EVERY 1 DAY
  21. PREDNISOLONE SODIUM METAZOATE [Concomitant]
     Active Substance: PREDNISOLONE SODIUM METAZOATE
     Dosage: 60 MG, EVERY 1 DAY
  22. OXAZEPAM [Concomitant]
     Active Substance: OXAZEPAM
     Dosage: 5 MG, EVERY 1 DAY

REACTIONS (2)
  - Inappropriate antidiuretic hormone secretion [Recovered/Resolved]
  - Overdose [Unknown]

NARRATIVE: CASE EVENT DATE: 20230321
